FAERS Safety Report 4384646-5 (Version None)
Quarter: 2004Q2

REPORT INFORMATION
  Report Type: 
  Country: None (occurrence: None)
  Receive Date: 20040625
  Receipt Date: 20040309
  Transmission Date: 20050107
  Serious: No
  Sender: FDA-Public Use
  Company Number: US-BRISTOL-MYERS SQUIBB COMPANY-12537452

PATIENT
  Sex: Female

DRUGS (1)
  1. SINEMET CR [Suspect]
     Dosage: SECOND BATCH# N4682/ EXP. 31-MAR-2006  DOSE VALUE: 25MG/250MG
     Route: 048

REACTIONS (3)
  - DRUG EFFECT DECREASED [None]
  - THERAPEUTIC RESPONSE DECREASED [None]
  - THERAPEUTIC RESPONSE INCREASED [None]
